FAERS Safety Report 7835485-1 (Version None)
Quarter: 2011Q4

REPORT INFORMATION
  Report Type: 
  Country: None (occurrence: None)
  Receive Date: 20111024
  Receipt Date: 20111018
  Transmission Date: 20120403
  Serious: Yes (Other)
  Sender: FDA-Public Use
  Company Number: JP-BAYER-2011-026728

PATIENT
  Age: 66 Year
  Sex: Male

DRUGS (3)
  1. NEXAVAR [Suspect]
     Dosage: UNK
     Route: 048
     Dates: end: 20110831
  2. NEXAVAR [Suspect]
     Dosage: 400 MG, QD
     Route: 048
  3. NEXAVAR [Suspect]
     Indication: RENAL CELL CARCINOMA
     Dosage: 400 MG, BID
     Route: 048
     Dates: start: 20110125, end: 20110307

REACTIONS (2)
  - PALMAR-PLANTAR ERYTHRODYSAESTHESIA SYNDROME [None]
  - NEPHROTIC SYNDROME [None]
